FAERS Safety Report 10904638 (Version 1)
Quarter: 2015Q1

REPORT INFORMATION
  Report Type: Spontaneous
  Country: CA (occurrence: None)
  Receive Date: 20150304
  Receipt Date: 20150304
  Transmission Date: 20150721
  Serious: No
  Sender: FDA-Public Use
  Company Number: None

PATIENT
  Age: 36 Year
  Sex: Female
  Weight: 54.43 kg

DRUGS (2)
  1. ADVIL [Suspect]
     Active Substance: IBUPROFEN
     Indication: INFLUENZA
     Dosage: TWICE DAILY, TAKEN BY MOUTH
     Route: 048
     Dates: start: 20150301, end: 20150301
  2. ECHINACEA [Concomitant]
     Active Substance: ECHINACEA, UNSPECIFIED

REACTIONS (4)
  - Nausea [None]
  - Dizziness [None]
  - Vomiting [None]
  - Feeling abnormal [None]

NARRATIVE: CASE EVENT DATE: 20150301
